FAERS Safety Report 9741754 (Version 1)
Quarter: 2013Q4

REPORT INFORMATION
  Report Type: Report from Study
  Country: US (occurrence: US)
  Receive Date: 20131210
  Receipt Date: 20131210
  Transmission Date: 20140711
  Serious: Yes (Other)
  Sender: FDA-Public Use
  Company Number: US-ROCHE-1314537

PATIENT
  Sex: Female
  Weight: 34.2 kg

DRUGS (5)
  1. NUTROPIN AQ [Suspect]
     Indication: GROWTH HORMONE DEFICIENCY
     Route: 058
     Dates: end: 20130514
  2. NUTROPIN AQ [Suspect]
     Route: 058
     Dates: start: 20130514
  3. CYANOCOBALAMIN [Concomitant]
     Route: 030
  4. CYANOCOBALAMIN [Concomitant]
     Route: 058
  5. MULTIVITAMIN [Concomitant]
     Dosage: 1 TAB
     Route: 048

REACTIONS (2)
  - Headache [Unknown]
  - Growth accelerated [Unknown]
